FAERS Safety Report 25971774 (Version 1)
Quarter: 2025Q4

REPORT INFORMATION
  Report Type: Spontaneous
  Country: CN (occurrence: CN)
  Receive Date: 20251029
  Receipt Date: 20251029
  Transmission Date: 20260118
  Serious: Yes (Hospitalization, Other)
  Sender: BAXTER
  Company Number: None

PATIENT
  Age: 52 Year
  Sex: Female
  Weight: 55 kg

DRUGS (4)
  1. CYCLOPHOSPHAMIDE [Suspect]
     Active Substance: CYCLOPHOSPHAMIDE
     Indication: Acute lymphocytic leukaemia
     Dosage: 1.1 G, 1X A WEEK
     Route: 041
     Dates: start: 20250918, end: 20250918
  2. MESNA [Suspect]
     Active Substance: MESNA
     Indication: Detoxification
     Dosage: 400 MG, TID (CTX STARTING AT 0, 4, 8 H)
     Route: 042
     Dates: start: 202509
  3. CYTARABINE [Suspect]
     Active Substance: CYTARABINE
     Indication: Acute lymphocytic leukaemia
     Dosage: 0.15 G, QD (D1-3) (D8-10)
     Route: 041
     Dates: start: 20250918, end: 20250927
  4. PEGASPARGASE [Concomitant]
     Active Substance: PEGASPARGASE
     Indication: Acute lymphocytic leukaemia
     Dosage: 3750U
     Route: 030
     Dates: start: 20250922

REACTIONS (1)
  - Myelosuppression [Recovering/Resolving]

NARRATIVE: CASE EVENT DATE: 20250921
